FAERS Safety Report 17442421 (Version 2)
Quarter: 2020Q1

REPORT INFORMATION
  Report Type: Report from Study
  Country: US (occurrence: US)
  Receive Date: 20200220
  Receipt Date: 20200227
  Transmission Date: 20200409
  Serious: Yes (Hospitalization)
  Sender: FDA-Public Use
  Company Number: US-EISAI MEDICAL RESEARCH-EC-2020-068763

PATIENT
  Age: 64 Year
  Sex: Male
  Weight: 91 kg

DRUGS (15)
  1. LENVIMA [Suspect]
     Active Substance: LENVATINIB
     Indication: HEPATOCELLULAR CARCINOMA
     Dosage: SPLITTING UP IN THREE DOSES INSTEAD OF TAKING THEM ALL AT ONCE
     Route: 048
     Dates: start: 202001, end: 2020
  2. MELATONIN [Concomitant]
     Active Substance: MELATONIN
  3. ANASTROZOLE. [Concomitant]
     Active Substance: ANASTROZOLE
  4. PROCHLORPERAZINE MALEATE. [Concomitant]
     Active Substance: PROCHLORPERAZINE MALEATE
  5. COLACE [Concomitant]
     Active Substance: DOCUSATE SODIUM
  6. SENOKOT-S [Concomitant]
     Active Substance: DOCUSATE SODIUM\SENNOSIDES
  7. FISH OIL [Concomitant]
     Active Substance: FISH OIL
  8. TRAMADOL. [Concomitant]
     Active Substance: TRAMADOL
  9. ADVIL [Concomitant]
     Active Substance: IBUPROFEN
  10. OXYCODONE [Concomitant]
     Active Substance: OXYCODONE
  11. LISINOPRIL. [Concomitant]
     Active Substance: LISINOPRIL
  12. VALSARTAN. [Concomitant]
     Active Substance: VALSARTAN
  13. AMLODIPINE BESYLATE. [Concomitant]
     Active Substance: AMLODIPINE BESYLATE
  14. LENVIMA [Suspect]
     Active Substance: LENVATINIB
     Route: 048
     Dates: start: 2020, end: 20200208
  15. NADOLOL. [Concomitant]
     Active Substance: NADOLOL

REACTIONS (3)
  - Inappropriate schedule of product administration [Unknown]
  - Posterior reversible encephalopathy syndrome [Unknown]
  - Blood pressure increased [Unknown]

NARRATIVE: CASE EVENT DATE: 202001
